FAERS Safety Report 11218623 (Version 4)
Quarter: 2015Q3

REPORT INFORMATION
  Report Type: Report from Study
  Country: AU (occurrence: AU)
  Receive Date: 20150625
  Receipt Date: 20150803
  Transmission Date: 20151125
  Serious: Yes (Hospitalization, Other)
  Sender: FDA-Public Use
  Company Number: AU-PFIZER INC-2015212582

PATIENT
  Age: 49 Year
  Sex: Male
  Weight: 67 kg

DRUGS (5)
  1. PANTOPRAZOLE [Suspect]
     Active Substance: PANTOPRAZOLE SODIUM
     Indication: GASTROOESOPHAGEAL REFLUX DISEASE
     Dosage: 40 MG, DAILY
     Route: 048
     Dates: start: 201503
  2. CLOZARIL [Suspect]
     Active Substance: CLOZAPINE
     Indication: SCHIZOPHRENIA
     Dosage: 900 MG, DAILY
     Route: 048
     Dates: start: 20130618, end: 20150402
  3. CLOZARIL [Suspect]
     Active Substance: CLOZAPINE
     Dosage: UNK
     Route: 048
  4. GEMFIBROZIL. [Concomitant]
     Active Substance: GEMFIBROZIL
     Dosage: UNK
  5. ZUCLOPENTHIXOL DECANOATE [Concomitant]
     Active Substance: ZUCLOPENTHIXOL DECANOATE
     Dosage: 200 MG/ML

REACTIONS (15)
  - Iron deficiency anaemia [Unknown]
  - Blood potassium decreased [Recovered/Resolved]
  - Blood chloride decreased [Recovered/Resolved]
  - Blood urea increased [Recovered/Resolved]
  - Blood sodium decreased [Recovered/Resolved]
  - Blood glucose increased [Recovered/Resolved]
  - Red blood cell count decreased [Unknown]
  - Haematemesis [Recovered/Resolved]
  - Nausea [Recovered/Resolved]
  - Intestinal obstruction [Unknown]
  - Blood lactate dehydrogenase decreased [Unknown]
  - Platelet count increased [Unknown]
  - Antipsychotic drug level below therapeutic [Recovered/Resolved]
  - Ileus [Unknown]
  - Vitamin B12 increased [Unknown]

NARRATIVE: CASE EVENT DATE: 20150309
